FAERS Safety Report 13275490 (Version 1)
Quarter: 2017Q1

REPORT INFORMATION
  Report Type: Spontaneous
  Country: PT (occurrence: PT)
  Receive Date: 20170228
  Receipt Date: 20170228
  Transmission Date: 20170428
  Serious: Yes (Hospitalization, Other)
  Sender: FDA-Public Use
  Company Number: PT-ROCHE-1899159

PATIENT
  Age: 63 Year
  Sex: Female
  Weight: 62 kg

DRUGS (3)
  1. ACTILYSE [Suspect]
     Active Substance: ALTEPLASE
     Indication: ISCHAEMIC STROKE
     Route: 042
     Dates: start: 20161203, end: 20161203
  2. ACTILYSE [Suspect]
     Active Substance: ALTEPLASE
     Indication: THROMBOLYSIS
  3. ELIQUIS [Suspect]
     Active Substance: APIXABAN
     Indication: ATRIAL FIBRILLATION
     Dosage: FILM-COATED TABLET
     Route: 048
     Dates: start: 20161222, end: 20170103

REACTIONS (4)
  - Eosinophilia [Recovering/Resolving]
  - Acute kidney injury [Recovering/Resolving]
  - Fat embolism [Unknown]
  - Livedo reticularis [Recovering/Resolving]

NARRATIVE: CASE EVENT DATE: 20170102
